FAERS Safety Report 10192953 (Version 1)
Quarter: 2014Q2

REPORT INFORMATION
  Report Type: Spontaneous
  Country: US (occurrence: US)
  Receive Date: 20140523
  Receipt Date: 20140523
  Transmission Date: 20141212
  Serious: Yes (Other)
  Sender: FDA-Public Use
  Company Number: US-RB-067735-14

PATIENT
  Age: 46 Year
  Sex: Female

DRUGS (1)
  1. BUPRENORPHINE NALOXONE GENERIC [Suspect]
     Indication: DRUG DEPENDENCE
     Dosage: DOSING DETAILS UNKNOWN; MEDICALLY SUPERVISED TAPER DOWN: LAST DOSE 1 MG
     Route: 060
     Dates: end: 20140505

REACTIONS (9)
  - Wrong technique in drug usage process [Recovered/Resolved]
  - Drug withdrawal syndrome [Not Recovered/Not Resolved]
  - Suicidal ideation [Recovering/Resolving]
  - Emotional disorder [Recovering/Resolving]
  - Fatigue [Not Recovered/Not Resolved]
  - Diarrhoea [Not Recovered/Not Resolved]
  - Restless legs syndrome [Not Recovered/Not Resolved]
  - Anger [Not Recovered/Not Resolved]
  - Insomnia [Recovered/Resolved]
